FAERS Safety Report 24726877 (Version 1)
Quarter: 2024Q4

REPORT INFORMATION
  Report Type: Spontaneous
  Country: GB (occurrence: GB)
  Receive Date: 20241212
  Receipt Date: 20241212
  Transmission Date: 20250114
  Serious: Yes (Other)
  Sender: B BRAUN
  Company Number: GB-B.Braun Medical Inc.-2166977

PATIENT
  Sex: Female

DRUGS (2)
  1. METRONIDAZOLE [Suspect]
     Active Substance: METRONIDAZOLE
  2. CLOTRIMAZOLE [Suspect]
     Active Substance: CLOTRIMAZOLE

REACTIONS (2)
  - Chromaturia [Recovering/Resolving]
  - Panic attack [Recovering/Resolving]
